FAERS Safety Report 23414922 (Version 2)
Quarter: 2024Q1

REPORT INFORMATION
  Report Type: Report from Study
  Country: CA (occurrence: None)
  Receive Date: 20240118
  Receipt Date: 20240122
  Transmission Date: 20240410
  Serious: Yes (Other)
  Sender: FDA-Public Use
  Company Number: 2024A007113

PATIENT
  Sex: Male

DRUGS (2)
  1. IMFINZI [Suspect]
     Active Substance: DURVALUMAB
     Indication: HER2 positive biliary tract cancer
     Route: 041
     Dates: start: 20231018
  2. FRAGMIN [Concomitant]
     Active Substance: DALTEPARIN SODIUM

REACTIONS (3)
  - Abdominal mass [Unknown]
  - Bacterial infection [Unknown]
  - Abdominal abscess [Unknown]
